FAERS Safety Report 7491194-2 (Version None)
Quarter: 2011Q2

REPORT INFORMATION
  Report Type: 
  Country: None (occurrence: None)
  Receive Date: 20110519
  Receipt Date: 20110503
  Transmission Date: 20111010
  Serious: Yes (Other)
  Sender: FDA-Public Use
  Company Number: US-ROCHE-777978

PATIENT
  Age: 82 Year

DRUGS (2)
  1. RANIBIZUMAB [Suspect]
     Dosage: 0.5 MG, UNKNOWN
     Route: 031
  2. BEVACIZUMAB [Suspect]
     Dosage: 1.25 MG, UNK
     Route: 065

REACTIONS (2)
  - SUBRETINAL FIBROSIS [None]
  - VISUAL ACUITY REDUCED [None]
